FAERS Safety Report 15279875 (Version 1)
Quarter: 2018Q3

REPORT INFORMATION
  Report Type: Spontaneous
  Country: US (occurrence: US)
  Receive Date: 20180730
  Receipt Date: 20180730
  Transmission Date: 20181010
  Serious: Yes (Other)
  Sender: FDA-Public Use
  Company Number: None

PATIENT
  Age: 66 Year
  Sex: Male
  Weight: 94.05 kg

DRUGS (14)
  1. TESTOSTERONE CYPIONATE INJECTIOIN [Concomitant]
  2. BYPROPION HCL XL (WELLBUTRIN) [Concomitant]
  3. PANTOPRAZOLE [Concomitant]
     Active Substance: PANTOPRAZOLE
  4. BAUSCH + LOMB [Concomitant]
  5. PRESERVISION [Concomitant]
     Active Substance: MINERALS\VITAMINS
  6. LISINOPRIL. [Concomitant]
     Active Substance: LISINOPRIL
  7. TRAMADOL. [Suspect]
     Active Substance: TRAMADOL
     Indication: SCIATICA
     Dosage: ?          QUANTITY:21 DF DOSAGE FORM;?
     Route: 048
     Dates: start: 20180619, end: 20180620
  8. MAGNESIUM EYE VITAMIN + MINERAL SU7PPLEMENT [Concomitant]
  9. ACE INHIBITOR [Concomitant]
     Active Substance: UNSPECIFIED INGREDIENT
  10. AREDS 2 [Concomitant]
     Active Substance: MINERALS\VITAMINS
  11. BUSPIRONE [Concomitant]
     Active Substance: BUSPIRONE HYDROCHLORIDE
  12. CIALIS [Concomitant]
     Active Substance: TADALAFIL
  13. VITAMIN D3 [Concomitant]
     Active Substance: CHOLECALCIFEROL
  14. TRAZODONE HYDROCHLORIDE. [Concomitant]
     Active Substance: TRAZODONE HYDROCHLORIDE

REACTIONS (2)
  - Sciatica [None]
  - Condition aggravated [None]

NARRATIVE: CASE EVENT DATE: 20180620
